FAERS Safety Report 4989755-5 (Version None)
Quarter: 2006Q2

REPORT INFORMATION
  Report Type: 
  Country: None (occurrence: None)
  Receive Date: 20060501
  Receipt Date: 20060417
  Transmission Date: 20061013
  Serious: Yes (Hospitalization)
  Sender: FDA-Public Use
  Company Number: HQWYE686607APR06

PATIENT
  Age: 90 Year
  Sex: Male

DRUGS (3)
  1. EFFEXOR XR [Suspect]
     Dosage: 150 MG 1 X PER 1 DAY; 225 MG 1X PER 1 DAY; TAPERED OFF
     Dates: start: 20060101, end: 20060101
  2. EFFEXOR XR [Suspect]
     Dosage: 150 MG 1 X PER 1 DAY; 225 MG 1X PER 1 DAY; TAPERED OFF
     Dates: end: 20060101
  3. WELLBUTRIN XL [Suspect]

REACTIONS (2)
  - HYPERTENSION [None]
  - TACHYPNOEA [None]
